FAERS Safety Report 15245117 (Version 1)
Quarter: 2018Q3

REPORT INFORMATION
  Report Type: Spontaneous
  Country: US (occurrence: US)
  Receive Date: 20180713
  Receipt Date: 20180713
  Transmission Date: 20181010
  Serious: No
  Sender: FDA-Public Use
  Company Number: None

PATIENT
  Age: 71 Year
  Sex: Female

DRUGS (1)
  1. NINLARO [Suspect]
     Active Substance: IXAZOMIB CITRATE
     Indication: PLASMA CELL MYELOMA
     Dosage: ?          OTHER FREQUENCY:TAKE 1 ON DAYS 1,8; 15 OF EACH MONTH?
     Route: 048
     Dates: start: 20170601, end: 20180630

REACTIONS (3)
  - Ear infection [None]
  - Pyrexia [None]
  - Vomiting [None]
